FAERS Safety Report 13614185 (Version 3)
Quarter: 2017Q2

REPORT INFORMATION
  Report Type: Spontaneous
  Country: US (occurrence: US)
  Receive Date: 20170606
  Receipt Date: 20170614
  Transmission Date: 20170830
  Serious: Yes (Other)
  Sender: FDA-Public Use
  Company Number: US-AUROBINDO-AUR-APL-2017-34887

PATIENT
  Age: 68 Year
  Sex: Female

DRUGS (2)
  1. PREDNISONE. [Suspect]
     Active Substance: PREDNISONE
     Indication: PRODUCT USED FOR UNKNOWN INDICATION
     Dosage: 10 MG, DAILY
  2. AZATHIOPRINE. [Suspect]
     Active Substance: AZATHIOPRINE
     Indication: PRODUCT USED FOR UNKNOWN INDICATION
     Dosage: 25 MG, DAILY
     Route: 065

REACTIONS (7)
  - Tachycardia [Unknown]
  - Pyrexia [Recovered/Resolved]
  - Immunosuppression [Unknown]
  - Abdominal pain upper [Unknown]
  - Liver abscess [Recovered/Resolved]
  - Listeriosis [Unknown]
  - Tachypnoea [Unknown]
